FAERS Safety Report 21451495 (Version 2)
Quarter: 2022Q4

REPORT INFORMATION
  Report Type: Report from Study
  Country: CA (occurrence: CA)
  Receive Date: 20221013
  Receipt Date: 20221028
  Transmission Date: 20230113
  Serious: Yes (Other)
  Sender: FDA-Public Use
  Company Number: CA-TEVA-2022-CA-2081710

PATIENT
  Age: 45 Year
  Sex: Female

DRUGS (6)
  1. HYDROCORTISONE [Suspect]
     Active Substance: HYDROCORTISONE
     Indication: Fungal infection
     Dosage: RECEIVED 1% HYDROCORTISONE POWDER IN CICLOPIROX CREAM TOPICALLY
     Route: 061
  2. HYDROCORTISONE [Suspect]
     Active Substance: HYDROCORTISONE
     Indication: Trichophytosis
  3. CLOTRIMAZOLE [Suspect]
     Active Substance: CLOTRIMAZOLE
     Indication: Fungal infection
     Route: 065
  4. CLOTRIMAZOLE [Suspect]
     Active Substance: CLOTRIMAZOLE
     Indication: Trichophytosis
  5. CICLOPIROX [Suspect]
     Active Substance: CICLOPIROX
     Indication: Fungal infection
     Dosage: RECEIVED 1% HYDROCORTISONE POWDER IN CICLOPIROX CREAM TOPICALLY
     Route: 061
  6. CICLOPIROX [Suspect]
     Active Substance: CICLOPIROX
     Indication: Trichophytosis

REACTIONS (2)
  - Fungal infection [Unknown]
  - Drug ineffective [Unknown]
